FAERS Safety Report 8493742-2 (Version None)
Quarter: 2012Q3

REPORT INFORMATION
  Report Type: 
  Country: None (occurrence: None)
  Receive Date: 20120706
  Receipt Date: 20120622
  Transmission Date: 20120928
  Serious: Yes (Hospitalization)
  Sender: FDA-Public Use
  Company Number: CHPA2012US013969

PATIENT
  Age: 84 Year
  Sex: Female

DRUGS (3)
  1. COLACE [Concomitant]
     Dosage: UNK, UNK
     Route: 048
  2. BENEFIBER W/ WHEAT DEXTRIN [Suspect]
     Indication: NUTRITIONAL SUPPORT
     Dosage: 3 DF, LESS THAN 3 TIMES A DAY
     Route: 048
  3. BENEFIBER UNKNOWN [Suspect]
     Dosage: 3 TSP, TID
     Route: 048

REACTIONS (1)
  - INTESTINAL OBSTRUCTION [None]
